FAERS Safety Report 5372359-2 (Version None)
Quarter: 2007Q2

REPORT INFORMATION
  Report Type: 
  Country: None (occurrence: None)
  Receive Date: 20070620
  Receipt Date: 20070413
  Transmission Date: 20071010
  Serious: No
  Sender: FDA-Public Use
  Company Number: 2007RL000165

PATIENT
  Age: 68 Year
  Sex: Female

DRUGS (5)
  1. OMACOR [Suspect]
     Indication: BLOOD CHOLESTEROL INCREASED
     Dosage: 2 GM;QD;PO
     Route: 048
     Dates: start: 20070401
  2. MEVACOR [Concomitant]
  3. ZETIA [Concomitant]
  4. FOSAMAX [Concomitant]
  5. RESCUE 1250 [Concomitant]

REACTIONS (1)
  - DIARRHOEA [None]
